FAERS Safety Report 19082389 (Version 3)
Quarter: 2023Q1

REPORT INFORMATION
  Report Type: Spontaneous
  Country: DE (occurrence: DE)
  Receive Date: 20210401
  Receipt Date: 20230123
  Transmission Date: 20230417
  Serious: Yes (Hospitalization, Other)
  Sender: FDA-Public Use
  Company Number: NVSC2021DE024941

PATIENT
  Age: 65 Year
  Sex: Female
  Weight: 72 kg

DRUGS (4)
  1. DOCETAXEL [Suspect]
     Active Substance: DOCETAXEL
     Indication: Lung adenocarcinoma
     Dosage: 75 MG/M2, QD (LIQUID)
     Route: 042
     Dates: start: 20201215
  2. NINTEDANIB [Suspect]
     Active Substance: NINTEDANIB
     Indication: Lung adenocarcinoma
     Dosage: 200 MG, Q12H
     Route: 048
     Dates: start: 20201216, end: 20210309
  3. NINTEDANIB [Suspect]
     Active Substance: NINTEDANIB
     Dosage: 150 MG, Q12H
     Route: 048
     Dates: start: 20210114
  4. NINTEDANIB [Suspect]
     Active Substance: NINTEDANIB
     Dosage: 100 MG, Q12H
     Route: 065
     Dates: start: 20201216, end: 20210309

REACTIONS (10)
  - Pulmonary haemorrhage [Not Recovered/Not Resolved]
  - Haemoptysis [Recovered/Resolved]
  - Flatulence [Recovered/Resolved]
  - Inflammatory marker increased [Recovered/Resolved]
  - Vomiting [Recovered/Resolved]
  - Vomiting [Recovered/Resolved]
  - Nausea [Recovered/Resolved]
  - Nausea [Recovered/Resolved]
  - Diarrhoea [Recovered/Resolved]
  - Diarrhoea [Not Recovered/Not Resolved]

NARRATIVE: CASE EVENT DATE: 20210101
